FAERS Safety Report 18489308 (Version 1)
Quarter: 2020Q4

REPORT INFORMATION
  Report Type: Spontaneous
  Country: US (occurrence: US)
  Receive Date: 20201106
  Receipt Date: 20201106
  Transmission Date: 20210114
  Serious: No
  Sender: FDA-Public Use
  Company Number: None

PATIENT

DRUGS (10)
  1. METOPROLOL SUCCINATE (TOPROL-XL) [Concomitant]
  2. ZOFRAN [Concomitant]
     Active Substance: ONDANSETRON HYDROCHLORIDE
  3. ENFORTUMAB VEDOTIN [Suspect]
     Active Substance: ENFORTUMAB VEDOTIN
  4. DILTIAZEM (DILACOR XR/DILT-XR) [Concomitant]
  5. TRAZODONE (DESYREL) [Concomitant]
  6. DELTASONE [Concomitant]
     Active Substance: PREDNISONE
  7. PROCHLORPERAZINE (COMPAZINE) [Concomitant]
  8. XARELTO [Concomitant]
     Active Substance: RIVAROXABAN
  9. TYLENOL [Concomitant]
     Active Substance: ACETAMINOPHEN
  10. ATIVAN [Concomitant]
     Active Substance: LORAZEPAM

REACTIONS (1)
  - Toxic epidermal necrolysis [None]
